FAERS Safety Report 7882903-9 (Version None)
Quarter: 2011Q4

REPORT INFORMATION
  Report Type: 
  Country: None (occurrence: None)
  Receive Date: 20111101
  Receipt Date: 20111026
  Transmission Date: 20120403
  Serious: Yes (Other)
  Sender: FDA-Public Use
  Company Number: US-AMGEN-USASP2011053289

PATIENT
  Age: 66 Year
  Sex: Female
  Weight: 43.537 kg

DRUGS (1)
  1. ENBREL [Suspect]
     Indication: RHEUMATOID ARTHRITIS
     Dosage: 50 MG, QWK
     Route: 058
     Dates: start: 20050101, end: 20110702

REACTIONS (2)
  - TUBERCULIN TEST POSITIVE [None]
  - PLEURAL FIBROSIS [None]
